FAERS Safety Report 4822508-7 (Version None)
Quarter: 2005Q4

REPORT INFORMATION
  Report Type: 
  Country: None (occurrence: None)
  Receive Date: 20051108
  Receipt Date: 20051027
  Transmission Date: 20060501
  Serious: Yes (Hospitalization)
  Sender: FDA-Public Use
  Company Number: US-JNJFOC-20051005857

PATIENT
  Sex: Female

DRUGS (10)
  1. INFLIXIMAB [Suspect]
     Indication: RHEUMATOID ARTHRITIS
     Route: 042
  2. PREDNISONE [Concomitant]
  3. METHOTREXATE [Concomitant]
  4. RALOXIFENE HCL [Concomitant]
  5. CALCIUM GLUCONATE [Concomitant]
  6. POTASSIUM CHLORIDE [Concomitant]
  7. FUROSEMIDE [Concomitant]
  8. FOLIC ACID [Concomitant]
  9. LISINOPRIL [Concomitant]
  10. METOPROLOL [Concomitant]

REACTIONS (1)
  - GASTRIC ULCER [None]
